FAERS Safety Report 10241684 (Version 1)
Quarter: 2014Q2

REPORT INFORMATION
  Report Type: Spontaneous
  Country: GB (occurrence: GB)
  Receive Date: 20140617
  Receipt Date: 20140617
  Transmission Date: 20141212
  Serious: Yes (Other)
  Sender: FDA-Public Use
  Company Number: GB-ASTRAZENECA-2014SE40363

PATIENT
  Age: 70 Year
  Sex: Male
  Weight: 78 kg

DRUGS (8)
  1. FELODIPINE [Suspect]
     Route: 048
     Dates: start: 20140526
  2. DABIGATRAN [Suspect]
     Indication: CARDIAC ASSISTANCE DEVICE USER
     Route: 048
     Dates: start: 20140526, end: 20140531
  3. DABIGATRAN [Suspect]
     Indication: ATRIAL FIBRILLATION
     Route: 048
     Dates: start: 20140526, end: 20140531
  4. DABIGATRAN [Suspect]
     Indication: ATRIOVENTRICULAR BLOCK
     Route: 048
     Dates: start: 20140526, end: 20140531
  5. CO-BENELDOPA [Concomitant]
  6. FUROSEMIDE [Concomitant]
  7. NOVOMIX [Concomitant]
  8. RAMIPRIL [Concomitant]

REACTIONS (2)
  - Platelet count decreased [Unknown]
  - Vasculitic rash [Not Recovered/Not Resolved]
